FAERS Safety Report 6223567-X (Version None)
Quarter: 2009Q2

REPORT INFORMATION
  Report Type: 
  Country: None (occurrence: None)
  Receive Date: 20090610
  Receipt Date: 20090603
  Transmission Date: 20091009
  Serious: Yes (Other)
  Sender: FDA-Public Use
  Company Number: 2009SP012322

PATIENT
  Age: 40 Year
  Sex: Male

DRUGS (1)
  1. DESLORATADINE [Suspect]
     Indication: SEASONAL ALLERGY
     Dosage: 1 DF; ONCE;
     Dates: start: 20090420, end: 20090420

REACTIONS (2)
  - LARYNGEAL OBSTRUCTION [None]
  - LARYNGEAL OEDEMA [None]
